FAERS Safety Report 8383511-6 (Version None)
Quarter: 2012Q2

REPORT INFORMATION
  Report Type: 
  Country: None (occurrence: None)
  Receive Date: 20120524
  Receipt Date: 20120520
  Transmission Date: 20120825
  Serious: Yes (Death, Other)
  Sender: FDA-Public Use
  Company Number: PHHY2012DE044090

PATIENT

DRUGS (8)
  1. CYCLOSPORINE [Suspect]
     Indication: PROPHYLAXIS AGAINST GRAFT VERSUS HOST DISEASE
     Dosage: 2.5 MG/KG
     Route: 042
  2. THIOTEPA [Concomitant]
  3. GANCICLOVIR [Concomitant]
  4. ALEMTUZUMAB [Concomitant]
     Indication: PROPHYLAXIS AGAINST GRAFT VERSUS HOST DISEASE
  5. VALGANCICLOVIR [Concomitant]
  6. FOSCARNET [Concomitant]
  7. CARMUSTINE [Concomitant]
  8. FLUDARABINE PHOSPHATE [Concomitant]

REACTIONS (4)
  - HUMAN HERPESVIRUS 6 INFECTION [None]
  - PNEUMONIA [None]
  - MENTAL DISORDER DUE TO A GENERAL MEDICAL CONDITION [None]
  - NEUROLOGICAL SYMPTOM [None]
